FAERS Safety Report 15684863 (Version 5)
Quarter: 2019Q1

REPORT INFORMATION
  Report Type: Spontaneous
  Country: US (occurrence: US)
  Receive Date: 20181204
  Receipt Date: 20190101
  Transmission Date: 20190417
  Serious: No
  Sender: FDA-Public Use
  Company Number: US-AMGEN INC.-USASP2018171427

PATIENT
  Age: 51 Year
  Sex: Female

DRUGS (2)
  1. AIMOVIG [Suspect]
     Active Substance: ERENUMAB-AOOE
     Indication: MIGRAINE PROPHYLAXIS
     Dosage: 70 MG, QMO
     Route: 065
     Dates: start: 20181029
  2. CANDESARTAN. [Concomitant]
     Active Substance: CANDESARTAN
     Indication: MIGRAINE
     Dosage: UNK, THEN DOSE SLOWLY LOWERED

REACTIONS (4)
  - Therapeutic response shortened [Unknown]
  - Injection site pain [Unknown]
  - Liquid product physical issue [Unknown]
  - Product dose omission [Unknown]

NARRATIVE: CASE EVENT DATE: 2018
